FAERS Safety Report 8924026 (Version 1)
Quarter: 2012Q4

REPORT INFORMATION
  Report Type: 
  Country: US (occurrence: US)
  Receive Date: 20121126
  Receipt Date: 20121126
  Transmission Date: 20130627
  Serious: No
  Sender: FDA-Public Use
  Company Number: US-009507513-1211USA008635

PATIENT
  Sex: Female

DRUGS (2)
  1. CLARITIN [Suspect]
     Indication: SEASONAL ALLERGY
     Dosage: 10 mg, Once
     Dates: start: 20120927
  2. CLARITIN [Suspect]
     Dosage: 10 mg, Once
     Route: 048
     Dates: start: 20120928

REACTIONS (1)
  - Overdose [Not Recovered/Not Resolved]
